FAERS Safety Report 25627443 (Version 1)
Quarter: 2025Q3

REPORT INFORMATION
  Report Type: Spontaneous
  Country: US (occurrence: None)
  Receive Date: 20250730
  Receipt Date: 20250730
  Transmission Date: 20251021
  Serious: Yes (unspecified)
  Sender: FDA-CTU
  Company Number: None

PATIENT
  Age: 10 Year
  Sex: Female
  Weight: 61.5 kg

DRUGS (1)
  1. KETAMINE [Suspect]
     Active Substance: KETAMINE
     Indication: Sedative therapy
     Route: 042
     Dates: start: 20250729, end: 20250729

REACTIONS (3)
  - Rash erythematous [None]
  - Rash [None]
  - Rash [None]

NARRATIVE: CASE EVENT DATE: 20250729
